FAERS Safety Report 6030871-7 (Version None)
Quarter: 2009Q1

REPORT INFORMATION
  Report Type: 
  Country: None (occurrence: None)
  Receive Date: 20090106
  Receipt Date: 20081222
  Transmission Date: 20090719
  Serious: Yes (Hospitalization)
  Sender: FDA-Public Use
  Company Number: FACT0800192

PATIENT
  Sex: Male

DRUGS (1)
  1. FACTIVE [Suspect]
     Indication: PNEUMONIA
     Dosage: 320 MG
     Dates: start: 20080101, end: 20080101

REACTIONS (2)
  - PNEUMONIA [None]
  - STEVENS-JOHNSON SYNDROME [None]
